FAERS Safety Report 8174004-X (Version None)
Quarter: 2012Q1

REPORT INFORMATION
  Report Type: 
  Country: None (occurrence: None)
  Receive Date: 20120223
  Receipt Date: 20120221
  Transmission Date: 20120608
  Serious: Yes (Hospitalization, Disabling)
  Sender: FDA-Public Use
  Company Number: WAES 1112USA02991

PATIENT
  Age: 69 Year
  Sex: Male

DRUGS (27)
  1. OXYCONTIN [Suspect]
     Indication: PAIN
     Dosage: 40;50 MG/BID, PO
     Route: 048
     Dates: start: 20110617
  2. OXYCONTIN [Suspect]
     Indication: PAIN
     Dosage: 40;50 MG/BID, PO
     Route: 048
     Dates: start: 20110507, end: 20110616
  3. DAI-KENCHU-TO [Concomitant]
  4. HIRUDOID [Concomitant]
  5. BLINDED THERAPY [Suspect]
     Indication: METASTATIC RENAL CELL CARCINOMA
     Dosage: 40;50 PO
     Route: 048
     Dates: start: 20101214, end: 20110714
  6. ACETAMINOPHEN [Concomitant]
  7. MOBIC [Concomitant]
  8. NORVASC [Concomitant]
  9. TELEMINSOFT [Concomitant]
  10. LANSOPRAZOLE [Concomitant]
  11. LAC-B [Concomitant]
  12. PRORENAL [Concomitant]
  13. DECADRON [Suspect]
     Indication: PYREXIA
     Dosage: 0.5; 1; 2 PO
     Route: 048
     Dates: start: 20111029
  14. DECADRON [Suspect]
     Indication: PYREXIA
     Dosage: 0.5; 1; 2 PO
     Route: 048
     Dates: start: 20110825, end: 20111013
  15. DECADRON [Suspect]
     Indication: PYREXIA
     Dosage: 0.5; 1; 2 PO
     Route: 048
     Dates: start: 20110618, end: 20110824
  16. DECADRON [Suspect]
     Indication: PYREXIA
     Dosage: 0.5; 1; 2 PO
     Route: 048
     Dates: start: 20111014, end: 20111028
  17. OXYCODONE HYDROCHLORIDE [Suspect]
     Indication: PAIN
     Dosage: 10 MG/PRN
     Dates: start: 20110506
  18. TIZANIDINE HCL [Concomitant]
  19. ZOMETA [Concomitant]
  20. MUCOSTA [Concomitant]
  21. OLMESARTAN MEDOXOMIL [Concomitant]
  22. AXITINIB [Suspect]
     Indication: METASTATIC RENAL CELL CARCINOMA
     Dosage: 5 MG/BID, PO
     Route: 048
     Dates: start: 20110827, end: 20110926
  23. AXITINIB [Suspect]
     Indication: METASTATIC RENAL CELL CARCINOMA
     Dosage: 5 MG/BID, PO
     Route: 048
     Dates: start: 20110729, end: 20110818
  24. AXITINIB [Suspect]
     Indication: METASTATIC RENAL CELL CARCINOMA
     Dosage: 5 MG/BID, PO
     Route: 048
     Dates: start: 20101116, end: 20110714
  25. GASMOTIN [Concomitant]
  26. MG OXIDE [Concomitant]
  27. PURSENNID (SENNA) [Concomitant]

REACTIONS (9)
  - EXTRADURAL ABSCESS [None]
  - ENTEROCOLITIS [None]
  - ABDOMINAL DISTENSION [None]
  - PYREXIA [None]
  - WHITE BLOOD CELL COUNT INCREASED [None]
  - DECREASED APPETITE [None]
  - SENSORY DISTURBANCE [None]
  - VOMITING [None]
  - DIPLEGIA [None]
